FAERS Safety Report 9678451 (Version 5)
Quarter: 2014Q1

REPORT INFORMATION
  Report Type: Report from Study
  Country: CL (occurrence: CL)
  Receive Date: 20131108
  Receipt Date: 20140320
  Transmission Date: 20141002
  Serious: Yes (Hospitalization, Disabling, Other)
  Sender: FDA-Public Use
  Company Number: CL-BRISTOL-MYERS SQUIBB COMPANY-19715283

PATIENT
  Age: 69 Year
  Sex: Female

DRUGS (18)
  1. ABATACEPT [Suspect]
     Indication: RHEUMATOID ARTHRITIS
     Route: 058
     Dates: start: 20090302, end: 20131021
  2. TRAMADOL [Concomitant]
     Dates: start: 20130515
  3. PREDNISONE [Concomitant]
     Route: 048
     Dates: start: 1989
  4. FOLIC ACID [Concomitant]
     Dates: start: 1989
  5. LEFLUNOMIDE [Concomitant]
     Dates: start: 201302, end: 20131029
  6. LOSARTAN [Concomitant]
     Dates: start: 2012
  7. FUROSEMIDE [Concomitant]
     Dates: start: 2012
  8. ASPIRIN [Concomitant]
     Dates: start: 20090608
  9. PREGABALIN [Concomitant]
     Dates: start: 20130925
  10. GABAPENTINE [Concomitant]
     Dates: start: 20130812
  11. SUPRADYN [Concomitant]
     Dates: start: 20081020
  12. DICLOFENAC [Concomitant]
     Dates: start: 2008
  13. OMEPRAZOLE [Concomitant]
     Dates: start: 2001
  14. FLUOXETINE [Concomitant]
     Dates: start: 20090608
  15. ATENOLOL [Concomitant]
     Dates: start: 20101016
  16. METFORMIN [Concomitant]
     Dates: start: 20101016
  17. APAP+PSEUDOEPHEDRINE+CHLORPHENIRAMINE [Concomitant]
     Dates: start: 20110225
  18. CALCIUM + VITAMIN D [Concomitant]
     Dates: start: 2004

REACTIONS (2)
  - Lumbar radiculopathy [Recovered/Resolved with Sequelae]
  - Postoperative wound infection [Recovered/Resolved]
